FAERS Safety Report 6957022-6 (Version None)
Quarter: 2010Q3

REPORT INFORMATION
  Report Type: 
  Country: None (occurrence: None)
  Receive Date: 20100827
  Receipt Date: 20100827
  Transmission Date: 20110219
  Serious: Yes (Hospitalization)
  Sender: FDA-Public Use
  Company Number: None

PATIENT
  Age: 29 Year
  Sex: Female

DRUGS (6)
  1. ALEFACEPT 15 MG FOR INJECTION [Suspect]
     Indication: IMMUNOSUPPRESSION
     Dosage: 15 MG WEEKLY SUBCUTANEOUS (057)
     Route: 058
     Dates: start: 20100722
  2. ALEFACEPT 15 MG FOR INJECTION [Suspect]
     Indication: IMMUNOSUPPRESSION
     Dosage: 15 MG WEEKLY SUBCUTANEOUS (057)
     Route: 058
     Dates: start: 20100724
  3. ALEFACEPT 15 MG FOR INJECTION [Suspect]
     Indication: IMMUNOSUPPRESSION
     Dosage: 15 MG WEEKLY SUBCUTANEOUS (057)
     Route: 058
     Dates: start: 20100729
  4. ALEFACEPT 15 MG FOR INJECTION [Suspect]
     Indication: IMMUNOSUPPRESSION
     Dosage: 15 MG WEEKLY SUBCUTANEOUS (057)
     Route: 058
     Dates: start: 20100805
  5. ALEFACEPT 15 MG FOR INJECTION [Suspect]
     Indication: IMMUNOSUPPRESSION
     Dosage: 15 MG WEEKLY SUBCUTANEOUS (057)
     Route: 058
     Dates: start: 20100812
  6. ALEFACEPT 15 MG FOR INJECTION [Suspect]
     Indication: IMMUNOSUPPRESSION
     Dosage: 15 MG WEEKLY SUBCUTANEOUS (057)
     Route: 058
     Dates: start: 20100819

REACTIONS (2)
  - CULTURE URINE POSITIVE [None]
  - KLEBSIELLA INFECTION [None]
